FAERS Safety Report 6767232-9 (Version None)
Quarter: 2010Q2

REPORT INFORMATION
  Report Type: 
  Country: None (occurrence: None)
  Receive Date: 20100614
  Receipt Date: 20100604
  Transmission Date: 20101027
  Serious: Yes (Other)
  Sender: FDA-Public Use
  Company Number: US-SOLVAY-00210003640

PATIENT
  Age: 67 Year
  Sex: Male
  Weight: 67.727 kg

DRUGS (6)
  1. ASPIRIN [Concomitant]
     Indication: DRUG USE FOR UNKNOWN INDICATION
     Dosage: DAILY DOSE: .5 DOSAGE FORM
     Route: 048
  2. LISINOPRIL [Concomitant]
     Indication: HYPERTENSION
     Dosage: DAILY DOSE:  UNKNOWN; AS USED: 10 MILLIGRAM(S)
     Route: 048
  3. SIMVASTATIN [Concomitant]
     Indication: HYPERCHOLESTEROLAEMIA
     Dosage: DAILY DOSE:  UNKNOWN
     Route: 048
  4. ANDROGEL [Suspect]
     Indication: BLOOD TESTOSTERONE DECREASED
     Dosage: DAILY DOSE: 5 GRAM(S); VIA: PUMP
     Route: 062
     Dates: start: 20090601, end: 20100101
  5. ANDROGEL [Suspect]
     Dosage: DAILY DOSE: 2.5 GRAM(S); VIA: PUMP
     Route: 062
     Dates: start: 20100101, end: 20100501
  6. ANDROGEL [Suspect]
     Dosage: DAILY DOSE: 5 GRAM(S); VIA: PUMP
     Route: 062
     Dates: start: 20100501

REACTIONS (3)
  - INCORRECT DOSE ADMINISTERED [None]
  - SUICIDAL IDEATION [None]
  - WEIGHT DECREASED [None]
